FAERS Safety Report 4636165-6 (Version None)
Quarter: 2005Q2

REPORT INFORMATION
  Report Type: 
  Country: None (occurrence: None)
  Receive Date: 20050325
  Receipt Date: 20041206
  Transmission Date: 20051028
  Serious: No
  Sender: FDA-Public Use
  Company Number: USA040668914

PATIENT
  Age: 69 Year
  Sex: Female

DRUGS (4)
  1. FORTEO [Suspect]
     Indication: OSTEOPOROSIS
  2. TOPROL-XL [Concomitant]
  3. NEXIUM [Concomitant]
  4. ALLEGRA [Concomitant]

REACTIONS (8)
  - ARTHRITIS [None]
  - ASTHENIA [None]
  - CARDIAC DISORDER [None]
  - CHEST DISCOMFORT [None]
  - DEPRESSED MOOD [None]
  - DYSPEPSIA [None]
  - HEART RATE IRREGULAR [None]
  - INJECTION SITE ERYTHEMA [None]
